FAERS Safety Report 10615103 (Version 1)
Quarter: 2014Q4

REPORT INFORMATION
  Report Type: Spontaneous
  Country: DE (occurrence: DE)
  Receive Date: 20141201
  Receipt Date: 20141201
  Transmission Date: 20150529
  Serious: Yes (Congenital Anomaly)
  Sender: FDA-Public Use
  Company Number: DE-RANBAXY-2014RR-88999

PATIENT
  Age: 1 Day
  Sex: Female

DRUGS (3)
  1. VENLAFAXINE [Suspect]
     Active Substance: VENLAFAXINE HYDROCHLORIDE
     Indication: ANXIETY DISORDER
     Dosage: 150 MG, QD, DURING GESTATIONAL WEEK 0-8
     Route: 064
  2. SERTRALINE [Suspect]
     Active Substance: SERTRALINE HYDROCHLORIDE
     Indication: DEPRESSION
     Dosage: 25 MG, QD, DURING GESTATIONAL WEEKS 17-35.5
     Route: 064
     Dates: start: 20131010, end: 20140218
  3. FEMIBION [Concomitant]
     Active Substance: VITAMINS
     Indication: PROPHYLAXIS OF NEURAL TUBE DEFECT
     Dosage: UNK
     Route: 064
     Dates: start: 20130727, end: 20140218

REACTIONS (3)
  - Intraventricular haemorrhage [Recovering/Resolving]
  - Hydrocephalus [Unknown]
  - Haemangioma [Recovering/Resolving]

NARRATIVE: CASE EVENT DATE: 20140218
